FAERS Safety Report 23354394 (Version 1)
Quarter: 2024Q1

REPORT INFORMATION
  Report Type: Spontaneous
  Country: JP (occurrence: JP)
  Receive Date: 20240101
  Receipt Date: 20240101
  Transmission Date: 20240410
  Serious: Yes (Death, Hospitalization, Other)
  Sender: FDA-Public Use
  Company Number: JP-Accord-397971

PATIENT
  Age: 46 Year
  Sex: Male

DRUGS (9)
  1. MYCOPHENOLATE MOFETIL [Suspect]
     Active Substance: MYCOPHENOLATE MOFETIL
     Indication: Prophylaxis against graft versus host disease
     Route: 048
  2. TACROLIMUS [Suspect]
     Active Substance: TACROLIMUS
     Indication: Prophylaxis against graft versus host disease
  3. CYCLOPHOSPHAMIDE [Suspect]
     Active Substance: CYCLOPHOSPHAMIDE
     Indication: Prophylaxis against graft versus host disease
     Dosage: ON DAYS 3 AND 4
  4. FLUCONAZOLE [Suspect]
     Active Substance: FLUCONAZOLE
     Indication: Antifungal prophylaxis
     Dosage: ON DAYS - 84 TO - 67 AND - 15 TO - 10
  5. MICAFUNGIN SODIUM [Suspect]
     Active Substance: MICAFUNGIN SODIUM
     Indication: Antifungal prophylaxis
     Dosage: ON DAYS - 66 TO - 35 AND - 20 TO - 16
  6. CASPOFUNGIN [Suspect]
     Active Substance: CASPOFUNGIN
     Indication: Antifungal prophylaxis
     Dosage: ON DAYS - 34 TO - 21 AND - 9 TO - 8
  7. FLUDARABINE [Concomitant]
     Active Substance: FLUDARABINE PHOSPHATE
     Indication: Acute myeloid leukaemia
     Dosage: ON DAYS - 8 TO - 3
  8. CYTARABINE [Concomitant]
     Active Substance: CYTARABINE
     Indication: Acute myeloid leukaemia
     Dosage: 4 G/M2 ON DAYS - 8 AND - 7
  9. MELPHALAN [Concomitant]
     Active Substance: MELPHALAN
     Indication: Acute myeloid leukaemia
     Dosage: ON DAY - 2

REACTIONS (4)
  - Fungal infection [Fatal]
  - Candida infection [Fatal]
  - Multiple organ dysfunction syndrome [Fatal]
  - Ascites [Fatal]
